FAERS Safety Report 18166290 (Version 1)
Quarter: 2020Q3

REPORT INFORMATION
  Report Type: Spontaneous
  Country: US (occurrence: US)
  Receive Date: 20200819
  Receipt Date: 20200819
  Transmission Date: 20201103
  Serious: Yes (Other)
  Sender: FDA-Public Use
  Company Number: US-SA-2020SA215783

PATIENT

DRUGS (1)
  1. DULCOLAX NOS [Suspect]
     Active Substance: BISACODYL OR DOCUSATE SODIUM

REACTIONS (5)
  - Muscle spasms [Unknown]
  - Nausea [Unknown]
  - Near death experience [Unknown]
  - Vomiting [Unknown]
  - Cold sweat [Unknown]
